FAERS Safety Report 4432879-1 (Version None)
Quarter: 2004Q3

REPORT INFORMATION
  Report Type: 
  Country: None (occurrence: None)
  Receive Date: 20040823
  Receipt Date: 20040810
  Transmission Date: 20050211
  Serious: Yes (Life-Threatening, Hospitalization)
  Sender: FDA-Public Use
  Company Number: CIP04001759

PATIENT
  Age: 86 Year
  Sex: Female
  Weight: 45 kg

DRUGS (5)
  1. MACRODANTIN [Suspect]
     Indication: URINARY TRACT DISORDER
     Dosage: 100 MG DAILY, ORAL
     Route: 048
     Dates: start: 20011206, end: 20020212
  2. LASIX    /SCH/   (FUROSEMIDE; FUROSEMIDE SODIUM) [Concomitant]
  3. ALDACTONE [Concomitant]
  4. MONOPRIL [Concomitant]
  5. AMOXIL  AYERST LAB   (AMOXICILLIN TRIHYDRATE)CSAMAX [Concomitant]

REACTIONS (3)
  - ATRIAL FIBRILLATION [None]
  - DYSPNOEA [None]
  - PULMONARY OEDEMA [None]
